FAERS Safety Report 4449883-X (Version None)
Quarter: 2004Q3

REPORT INFORMATION
  Report Type: 
  Country: None (occurrence: None)
  Receive Date: 20040915
  Receipt Date: 20031016
  Transmission Date: 20050211
  Serious: Yes (Hospitalization)
  Sender: FDA-Public Use
  Company Number: JP-MERCK-0310USA02536

PATIENT
  Age: 83 Year
  Sex: Female

DRUGS (11)
  1. SOLANAX [Concomitant]
     Route: 048
     Dates: start: 20000101, end: 20030929
  2. CEFOTIAM HYDROCHLORIDE [Concomitant]
     Route: 042
     Dates: start: 20030929, end: 20031008
  3. DISOPYRAMIDE [Concomitant]
     Route: 048
     Dates: start: 20000101, end: 20030929
  4. PEPCID RPD [Suspect]
     Indication: GASTRIC ULCER
     Route: 048
     Dates: start: 20000101, end: 20030930
  5. LASIX [Concomitant]
     Route: 042
     Dates: start: 20030929, end: 20031001
  6. LASIX [Concomitant]
     Route: 048
     Dates: start: 20031002
  7. TAKEPRON [Concomitant]
     Route: 048
     Dates: start: 20031001
  8. MAGNESIUM OXIDE [Concomitant]
     Route: 048
     Dates: start: 20031011
  9. ADALAT [Concomitant]
     Route: 048
     Dates: start: 20000101, end: 20030929
  10. SLOW-K [Concomitant]
     Route: 048
     Dates: start: 20031009, end: 20031017
  11. MUCOSTA [Concomitant]
     Route: 048
     Dates: start: 20000101

REACTIONS (2)
  - CARDIAC FAILURE CONGESTIVE [None]
  - RHABDOMYOLYSIS [None]
